FAERS Safety Report 16078987 (Version 1)
Quarter: 2019Q1

REPORT INFORMATION
  Report Type: Report from Study
  Country: DE (occurrence: DE)
  Receive Date: 20190315
  Receipt Date: 20190315
  Transmission Date: 20190418
  Serious: Yes (Hospitalization)
  Sender: FDA-Public Use
  Company Number: DE-MYLANLABS-2019M1022974

PATIENT
  Sex: Male
  Weight: 61 kg

DRUGS (5)
  1. HERCEPTIN [Suspect]
     Active Substance: TRASTUZUMAB
     Indication: ADENOCARCINOMA
     Dosage: 390 MILLIGRAM, UNK
     Route: 042
     Dates: start: 20120529
  2. XELODA [Suspect]
     Active Substance: CAPECITABINE
     Indication: ADENOCARCINOMA
     Dosage: 1050 MILLIGRAM, UNK
     Route: 048
     Dates: start: 20111130, end: 20120613
  3. METOPROLOL. [Suspect]
     Active Substance: METOPROLOL
     Indication: HYPERTENSION
     Dosage: 50 MILLIGRAM, UNK
     Route: 042
  4. PYRIDOXINE [Suspect]
     Active Substance: PYRIDOXINE
     Indication: ADENOCARCINOMA
     Dosage: 120 MILLIGRAM, UNK
     Route: 048
  5. XELODA [Suspect]
     Active Substance: CAPECITABINE
     Indication: ADENOCARCINOMA
     Dosage: 1050 MILLIGRAM, UNK
     Route: 048
     Dates: start: 20120523

REACTIONS (1)
  - Urinary tract infection [Recovered/Resolved]

NARRATIVE: CASE EVENT DATE: 20120627
